FAERS Safety Report 6584597-1 (Version None)
Quarter: 2010Q1

REPORT INFORMATION
  Report Type: 
  Country: None (occurrence: None)
  Receive Date: 20100213
  Receipt Date: 20100213
  Transmission Date: 20100710
  Serious: Yes (Hospitalization)
  Sender: FDA-Public Use
  Company Number: None

PATIENT
  Sex: Male
  Weight: 73 kg

DRUGS (5)
  1. SUNITINIB MALATE [Suspect]
     Indication: RENAL CANCER METASTATIC
     Dosage: 37.5MG QD PO
     Route: 048
     Dates: start: 20100104, end: 20100202
  2. SUNITINIB MALATE [Suspect]
     Indication: RENAL CANCER METASTATIC
     Dosage: 50 MG QD PO
     Route: 048
     Dates: start: 20091209, end: 20091227
  3. ZANTAC [Concomitant]
  4. DILTIAZEM HCL [Concomitant]
  5. MINOXIDIL [Concomitant]

REACTIONS (1)
  - HYPONATRAEMIA [None]
